FAERS Safety Report 5567565-8 (Version None)
Quarter: 2007Q4

REPORT INFORMATION
  Report Type: 
  Country: None (occurrence: None)
  Receive Date: 20071219
  Receipt Date: 20071210
  Transmission Date: 20080405
  Serious: Yes (Hospitalization, Disabling, Other)
  Sender: FDA-Public Use
  Company Number: JP-PFIZER INC-2007095830

PATIENT
  Sex: Male
  Weight: 61 kg

DRUGS (2)
  1. CORTRIL (TABS) [Suspect]
     Indication: HYPOPITUITARISM
     Dosage: DAILY DOSE:20MG
     Route: 048
     Dates: start: 20060226, end: 20060305
  2. THYRADIN S [Concomitant]
     Indication: HYPOPITUITARISM
     Dosage: DAILY DOSE:50MCG
     Route: 048

REACTIONS (1)
  - CENTRAL PONTINE MYELINOLYSIS [None]
